FAERS Safety Report 13720608 (Version 2)
Quarter: 2017Q3

REPORT INFORMATION
  Report Type: Spontaneous
  Country: US (occurrence: US)
  Receive Date: 20170706
  Receipt Date: 20170920
  Transmission Date: 20171127
  Serious: Yes (Other)
  Sender: FDA-Public Use
  Company Number: US-JNJFOC-20170627480

PATIENT
  Age: 30 Year
  Sex: Female
  Weight: 68.04 kg

DRUGS (1)
  1. STELARA [Suspect]
     Active Substance: USTEKINUMAB
     Indication: CROHN^S DISEASE
     Route: 058
     Dates: start: 201702

REACTIONS (5)
  - Drug dose omission [Unknown]
  - Bronchitis [Recovered/Resolved]
  - Tonsillitis [Not Recovered/Not Resolved]
  - Crohn^s disease [Unknown]
  - Product storage error [Unknown]

NARRATIVE: CASE EVENT DATE: 2017
